FAERS Safety Report 25642262 (Version 1)
Quarter: 2025Q3

REPORT INFORMATION
  Report Type: Spontaneous
  Country: US (occurrence: US)
  Receive Date: 20250805
  Receipt Date: 20250805
  Transmission Date: 20251021
  Serious: No
  Sender: SANOFI AVENTIS
  Company Number: US-SA-2025SA223885

PATIENT
  Age: 64 Year
  Sex: Female
  Weight: 71.82 kg

DRUGS (2)
  1. DUPIXENT [Suspect]
     Active Substance: DUPILUMAB
     Indication: Dermatitis atopic
     Dosage: 300 MG, QOW
     Route: 058
     Dates: start: 202410
  2. HYRIMOZ [Concomitant]
     Active Substance: ADALIMUMAB-ADAZ

REACTIONS (4)
  - Joint swelling [Recovered/Resolved]
  - Pain in extremity [Unknown]
  - Arthralgia [Unknown]
  - Dermatitis atopic [Unknown]

NARRATIVE: CASE EVENT DATE: 20250601
